FAERS Safety Report 16362639 (Version 1)
Quarter: 2019Q2

REPORT INFORMATION
  Report Type: Report from Study
  Country: ES (occurrence: ES)
  Receive Date: 20190528
  Receipt Date: 20190528
  Transmission Date: 20190711
  Serious: Yes (Other)
  Sender: FDA-Public Use
  Company Number: ES-ACTELION-A-CH2019-185620

PATIENT
  Age: 80 Year
  Sex: Male
  Weight: 80 kg

DRUGS (20)
  1. UPTRAVI [Suspect]
     Active Substance: SELEXIPAG
     Dosage: 2400 MCG, QD
     Route: 048
     Dates: start: 20181130, end: 20181213
  2. UPTRAVI [Suspect]
     Active Substance: SELEXIPAG
     Dosage: 2800 MCG, QD
     Route: 048
     Dates: start: 20190117, end: 20190131
  3. PREDNISONE. [Concomitant]
     Active Substance: PREDNISONE
     Indication: DIVERTICULUM
     Dosage: UNK
     Route: 048
     Dates: start: 20181031
  4. UPTRAVI [Suspect]
     Active Substance: SELEXIPAG
     Dosage: 400 MG, QD
     Route: 048
     Dates: start: 20181011, end: 20181018
  5. UPTRAVI [Suspect]
     Active Substance: SELEXIPAG
     Dosage: 800 MCG, QD
     Route: 048
     Dates: start: 20181018, end: 20181025
  6. UPTRAVI [Suspect]
     Active Substance: SELEXIPAG
     Dosage: 2800 MCG, QD
     Route: 048
     Dates: start: 20181213, end: 20181220
  7. IRON [Concomitant]
     Active Substance: IRON
     Indication: ANAEMIA
     Dosage: UNK
     Route: 048
     Dates: start: 20190131
  8. UPTRAVI [Suspect]
     Active Substance: SELEXIPAG
     Dosage: 2000 MCG, QD
     Route: 048
     Dates: start: 20181122, end: 20181130
  9. ESPIRONOLACTONA [Concomitant]
     Active Substance: SPIRONOLACTONE
     Indication: OEDEMA
     Dosage: UNK
     Route: 048
     Dates: start: 20181011
  10. ALOPURINOL [Concomitant]
     Active Substance: ALLOPURINOL
     Indication: DIVERTICULUM
     Dosage: UNK
     Route: 048
     Dates: start: 20180210
  11. UPTRAVI [Suspect]
     Active Substance: SELEXIPAG
     Dosage: 2400 MCG, QD
     Route: 048
     Dates: start: 20190131
  12. AMBRISENTAN [Concomitant]
     Active Substance: AMBRISENTAN
     Dosage: 10 MG, QD
     Dates: start: 20180607
  13. UPTRAVI [Suspect]
     Active Substance: SELEXIPAG
     Indication: PULMONARY ARTERIAL HYPERTENSION
     Dosage: 3200 MCG, QD
     Route: 048
     Dates: start: 20181221, end: 20190116
  14. UPTRAVI [Suspect]
     Active Substance: SELEXIPAG
     Dosage: 1200 MCG, QD
     Route: 048
     Dates: start: 20181025, end: 20181108
  15. ADCIRCA [Concomitant]
     Active Substance: TADALAFIL
     Indication: PULMONARY ARTERIAL HYPERTENSION
     Dosage: 20 MG, QD
     Dates: start: 20180409, end: 20180510
  16. ADCIRCA [Concomitant]
     Active Substance: TADALAFIL
     Dosage: 40 MG, QD
     Dates: start: 20180607
  17. AMBRISENTAN [Concomitant]
     Active Substance: AMBRISENTAN
     Indication: PULMONARY ARTERIAL HYPERTENSION
     Dosage: 5 MG, QD
     Dates: start: 20180409, end: 20180607
  18. SINVASTATINA [Concomitant]
     Active Substance: SIMVASTATIN
     Indication: HYPERTENSION
     Dosage: UNK
     Route: 048
     Dates: start: 20180418
  19. FUROSEMIDA [Concomitant]
     Active Substance: FUROSEMIDE
     Indication: OEDEMA
     Dosage: UNK
     Route: 048
     Dates: start: 20180409
  20. UPTRAVI [Suspect]
     Active Substance: SELEXIPAG
     Dosage: 1600 MCG, QD
     Route: 048
     Dates: start: 20181108, end: 20181122

REACTIONS (7)
  - Rhinorrhoea [Unknown]
  - Pain in extremity [Not Recovered/Not Resolved]
  - Concomitant disease aggravated [Unknown]
  - Headache [Not Recovered/Not Resolved]
  - Anaemia [Unknown]
  - Arteriosclerosis coronary artery [Unknown]
  - Renal impairment [Unknown]

NARRATIVE: CASE EVENT DATE: 20190116
